FAERS Safety Report 11813147 (Version 1)
Quarter: 2015Q4

REPORT INFORMATION
  Report Type: Spontaneous
  Country: US (occurrence: None)
  Receive Date: 20151207
  Receipt Date: 20151207
  Transmission Date: 20160305
  Serious: Yes (Other)
  Sender: FDA-Public Use
  Company Number: 15-040

PATIENT
  Age: 3 Year
  Sex: Female
  Weight: 47.6 kg

DRUGS (11)
  1. CLARITIN [Concomitant]
     Active Substance: LORATADINE
  2. MULTIVITAMIN [Concomitant]
     Active Substance: VITAMINS
  3. DYMISTA [Concomitant]
     Active Substance: AZELASTINE HYDROCHLORIDE\FLUTICASONE PROPIONATE
  4. ZONEGRAN [Concomitant]
     Active Substance: ZONISAMIDE
  5. VITAMIN B [Concomitant]
     Active Substance: VITAMIN B
  6. PHENOBARBITAL. [Suspect]
     Active Substance: PHENOBARBITAL
     Indication: SEIZURE
     Dates: start: 200404, end: 20151116
  7. NEXIUM [Concomitant]
     Active Substance: ESOMEPRAZOLE MAGNESIUM
  8. ONFI [Concomitant]
     Active Substance: CLOBAZAM
  9. BACLOFEN. [Concomitant]
     Active Substance: BACLOFEN
  10. FLORANEX [Concomitant]
     Active Substance: LACTOBACILLUS ACIDOPHILUS\LACTOBACILLUS DELBRUECKII SUBSP. BULGARICUS
  11. TUMS [Concomitant]
     Active Substance: CALCIUM CARBONATE

REACTIONS (13)
  - Dehydration [None]
  - Tracheostomy [None]
  - Abnormal behaviour [None]
  - Colectomy [None]
  - Pneumonia [None]
  - Intestinal perforation [None]
  - Eye pain [None]
  - Somnolence [None]
  - Ocular hyperaemia [None]
  - Fatigue [None]
  - Feeling drunk [None]
  - Anticonvulsant drug level increased [None]
  - Gastrostomy [None]

NARRATIVE: CASE EVENT DATE: 2006
